FAERS Safety Report 11647601 (Version 1)
Quarter: 2015Q4

REPORT INFORMATION
  Report Type: Spontaneous
  Country: US (occurrence: US)
  Receive Date: 20151021
  Receipt Date: 20151021
  Transmission Date: 20160304
  Serious: No
  Sender: FDA-Public Use
  Company Number: US-DRREDDYS-USA/USA/15/0050209

PATIENT
  Sex: Male
  Weight: 58.96 kg

DRUGS (1)
  1. ZENATANE [Suspect]
     Active Substance: ISOTRETINOIN
     Indication: ACNE
     Route: 048
     Dates: start: 20150727

REACTIONS (4)
  - Dry skin [Unknown]
  - Milia [Not Recovered/Not Resolved]
  - Epistaxis [Unknown]
  - Lip dry [Unknown]
